FAERS Safety Report 21487311 (Version 2)
Quarter: 2022Q4

REPORT INFORMATION
  Report Type: Spontaneous
  Country: US (occurrence: US)
  Receive Date: 20221020
  Receipt Date: 20221107
  Transmission Date: 20230113
  Serious: Yes (Hospitalization)
  Sender: FDA-Public Use
  Company Number: US-TEVA-2022-US-2816670

PATIENT
  Age: 48 Year
  Sex: Male

DRUGS (2)
  1. DEXAMETHASONE [Suspect]
     Active Substance: DEXAMETHASONE
     Indication: Acute respiratory distress syndrome
     Route: 042
  2. REMDESIVIR [Suspect]
     Active Substance: REMDESIVIR
     Indication: COVID-19 pneumonia
     Route: 065

REACTIONS (4)
  - Rhinocerebral mucormycosis [Unknown]
  - Mucormycosis [Unknown]
  - Diabetic ketoacidosis [Unknown]
  - Drug ineffective [Unknown]
